FAERS Safety Report 8096200 (Version 3)
Quarter: 2013Q2

REPORT INFORMATION
  Report Type: Spontaneous
  Country: FR (occurrence: FR)
  Receive Date: 20110818
  Receipt Date: 20130506
  Transmission Date: 20140414
  Serious: Yes (Hospitalization, Disabling, Other)
  Sender: FDA-Public Use
  Company Number: PHHY2011FR23389

PATIENT
  Age: 46 Year
  Sex: Female
  Weight: 78.3 kg

DRUGS (7)
  1. LEPONEX [Suspect]
     Indication: IMPULSIVE BEHAVIOUR
     Dosage: 300 MG 3 DF
     Route: 048
     Dates: start: 20061214, end: 20111215
  2. LEPONEX [Suspect]
     Indication: OFF LABEL USE
     Dosage: 200 MG,
     Route: 048
     Dates: start: 20101215
  3. LEPONEX [Suspect]
     Dosage: 100 MG,
     Route: 048
     Dates: end: 20110215
  4. EFFEXOR [Concomitant]
     Dosage: 75 MG, BID
  5. DEROXAT [Concomitant]
  6. LYSANXIA [Concomitant]
  7. LEVOTHYROX [Concomitant]

REACTIONS (7)
  - Humerus fracture [Not Recovered/Not Resolved]
  - Fracture nonunion [Unknown]
  - Joint dislocation [Unknown]
  - Limb discomfort [Unknown]
  - Convulsion [Recovered/Resolved]
  - Fall [Not Recovered/Not Resolved]
  - Osteonecrosis [Not Recovered/Not Resolved]
